FAERS Safety Report 5004212-8 (Version None)
Quarter: 2006Q2

REPORT INFORMATION
  Report Type: 
  Country: None (occurrence: None)
  Receive Date: 20060511
  Receipt Date: 20060503
  Transmission Date: 20061013
  Serious: Yes (Hospitalization)
  Sender: FDA-Public Use
  Company Number: 224679

PATIENT
  Age: 67 Year
  Sex: Male
  Weight: 113.4 kg

DRUGS (10)
  1. BEVACIZUMAB (BEVACIZUMAB) PWDR + SOLVENT, INFUSION SOLN, 100MG [Suspect]
     Indication: INSULINOMA
     Dosage: 570 MG, Q2W, INTRAVENOUS
     Route: 042
     Dates: start: 20060411, end: 20060425
  2. DEXAMETHASONE [Suspect]
     Dosage: 20 MG, Q2W, INTRAVENOUS
     Route: 042
     Dates: start: 20060411, end: 20060425
  3. PROTONIX [Concomitant]
  4. SANDOSTATIN [Concomitant]
  5. LORAZEPAM [Suspect]
     Dosage: 1 MG, QW2, ORAL
     Route: 048
     Dates: start: 20060411, end: 20060425
  6. GRANISETRON (GRANISETRON HYDROCHLORIDE) [Suspect]
     Indication: INSULINOMA
     Dosage: 1200 AUG, Q2W, INTRAVENOUS
     Route: 042
     Dates: start: 20060411, end: 20060425
  7. OXALIPLATIN (OXALIPLATIN) [Suspect]
     Indication: INSULINOMA
     Dosage: 200 MG, Q2W, INTRAVENOUS
     Route: 042
     Dates: start: 20060411, end: 20060425
  8. FLUOROURACIL [Suspect]
     Indication: INSULINOMA
     Dosage: 950 MG/M2, Q2W, INTRAVENOUS; 2850 MG, Q2W, INTRAVENOUS
     Route: 042
     Dates: start: 20060411, end: 20060425
  9. LEUCOVORIN CALCIUM [Suspect]
     Indication: INSULINOMA
     Dosage: 475 MG, QW2, INTRAVENOUS
     Route: 042
     Dates: start: 20060411, end: 20060425
  10. DEXTROSE 10% (DEXTROSE) [Concomitant]

REACTIONS (4)
  - ASPARTATE AMINOTRANSFERASE INCREASED [None]
  - CHILLS [None]
  - DEHYDRATION [None]
  - VOMITING [None]
